FAERS Safety Report 10275466 (Version 1)
Quarter: 2014Q3

REPORT INFORMATION
  Report Type: Spontaneous
  Country: FR (occurrence: FR)
  Receive Date: 20140703
  Receipt Date: 20140703
  Transmission Date: 20150326
  Serious: Yes (Hospitalization)
  Sender: FDA-Public Use
  Company Number: FR-ASTRAZENECA-2014SE46784

PATIENT
  Age: 24419 Day
  Sex: Female

DRUGS (7)
  1. ZESTRIL [Suspect]
     Active Substance: LISINOPRIL
     Indication: HYPERTENSION
     Route: 048
     Dates: start: 2012, end: 20140408
  2. VELMETIA [Suspect]
     Active Substance: METFORMIN\SITAGLIPTIN
     Indication: TYPE 2 DIABETES MELLITUS
     Dosage: 50 MG/1000 MG, ONE DOSAGE FORM TWO TIMES DAILY
     Route: 048
     Dates: start: 2012, end: 20140408
  3. FUROSEMIDE. [Concomitant]
     Active Substance: FUROSEMIDE
  4. EPITOMAX [Concomitant]
     Active Substance: TOPIRAMATE
  5. LAROXYL [Concomitant]
     Active Substance: AMITRIPTYLINE
  6. LYRICA [Concomitant]
     Active Substance: PREGABALIN
  7. RILMENIDINE [Concomitant]
     Active Substance: RILMENIDINE

REACTIONS (4)
  - Renal failure acute [Recovering/Resolving]
  - Lactic acidosis [Recovered/Resolved]
  - Cardio-respiratory arrest [Recovered/Resolved]
  - Hyperkalaemia [Recovered/Resolved]

NARRATIVE: CASE EVENT DATE: 20140408
